FAERS Safety Report 8979655 (Version 1)
Quarter: 2012Q4

REPORT INFORMATION
  Report Type: Report from Study
  Country: DE (occurrence: DE)
  Receive Date: 20121221
  Receipt Date: 20121221
  Transmission Date: 20130627
  Serious: Yes (Death, Hospitalization)
  Sender: FDA-Public Use
  Company Number: DE-ACTELION-A-US2012-66306

PATIENT
  Age: 77 Year
  Sex: Male

DRUGS (2)
  1. VENTAVIS [Suspect]
     Indication: PULMONARY ARTERIAL HYPERTENSION
     Dosage: 2.5 ?g, qid
     Route: 055
     Dates: start: 20110909
  2. REVATIO [Concomitant]

REACTIONS (3)
  - Death [Fatal]
  - Fluid retention [Recovered/Resolved]
  - Dyspnoea [Recovering/Resolving]
